FAERS Safety Report 4369783-3 (Version None)
Quarter: 2004Q2

REPORT INFORMATION
  Report Type: 
  Country: None (occurrence: None)
  Receive Date: 20040528
  Receipt Date: 20040517
  Transmission Date: 20050107
  Serious: Yes (Other)
  Sender: FDA-Public Use
  Company Number: 2004214261US

PATIENT

DRUGS (1)
  1. ZYVOX [Suspect]
     Indication: OSTEOMYELITIS
     Dosage: 600 G, BID

REACTIONS (3)
  - DRUG INEFFECTIVE [None]
  - TOE AMPUTATION [None]
  - WEIGHT DECREASED [None]
